FAERS Safety Report 8391011 (Version 4)
Quarter: 2013Q3

REPORT INFORMATION
  Report Type: Report from Study
  Country: NL (occurrence: NL)
  Receive Date: 20120206
  Receipt Date: 20130701
  Transmission Date: 20140515
  Serious: Yes (Hospitalization)
  Sender: FDA-Public Use
  Company Number: NL-JNJFOC-20120111313

PATIENT
  Age: 16 Year
  Sex: Female
  Weight: 52 kg

DRUGS (5)
  1. REMICADE [Suspect]
     Indication: CROHN^S DISEASE
     Route: 042
     Dates: start: 200907
  2. HUMIRA [Concomitant]
     Dates: start: 201105
  3. AZATHIOPRINE [Concomitant]
  4. BUDESONIDE [Concomitant]
  5. PREDNISONE [Concomitant]

REACTIONS (1)
  - Ileal fistula [Recovered/Resolved]
